FAERS Safety Report 7432340-6 (Version None)
Quarter: 2011Q2

REPORT INFORMATION
  Report Type: 
  Country: None (occurrence: None)
  Receive Date: 20110414
  Receipt Date: 20110331
  Transmission Date: 20111010
  Serious: Yes (Other)
  Sender: FDA-Public Use
  Company Number: 2011AP000630

PATIENT
  Age: 46 Year
  Sex: Female

DRUGS (5)
  1. ACETAMINOPHEN [Concomitant]
  2. AMLODIPINE [Concomitant]
  3. CODEINE PHOSPHATE (CODEINE PHSOPHATE) [Concomitant]
  4. CITALOPRAM HYDROBROMIDE [Suspect]
     Indication: DEPRESSION
     Dosage: 60 MG;QD ; 40 MG;QD
  5. ORLISTAT [Concomitant]

REACTIONS (2)
  - LACUNAR INFARCTION [None]
  - CEREBROVASCULAR ACCIDENT [None]
